FAERS Safety Report 4869269-3 (Version None)
Quarter: 2005Q4

REPORT INFORMATION
  Report Type: 
  Country: None (occurrence: None)
  Receive Date: 20051230
  Receipt Date: 20051221
  Transmission Date: 20060501
  Serious: Yes (Hospitalization)
  Sender: FDA-Public Use
  Company Number: US-JNJFOC-20051205255

PATIENT
  Sex: Female
  Weight: 63.5 kg

DRUGS (4)
  1. DURAGESIC-100 [Suspect]
     Route: 062
  2. XANAX [Concomitant]
     Indication: ANXIETY
     Route: 048
  3. LORTAB [Concomitant]
     Route: 048
  4. LORTAB [Concomitant]
     Indication: PAIN
     Dosage: 10/500 MG
     Route: 048

REACTIONS (5)
  - CLAVICLE FRACTURE [None]
  - LIMB INJURY [None]
  - LOWER LIMB FRACTURE [None]
  - LUNG INJURY [None]
  - ROAD TRAFFIC ACCIDENT [None]
